FAERS Safety Report 5895289-6 (Version None)
Quarter: 2008Q3

REPORT INFORMATION
  Report Type: 
  Country: None (occurrence: None)
  Receive Date: 20080924
  Receipt Date: 20080911
  Transmission Date: 20090109
  Serious: Yes (Hospitalization)
  Sender: FDA-Public Use
  Company Number: AU-PFIZER INC-2008078355

PATIENT
  Age: 36 Year
  Sex: Male

DRUGS (2)
  1. CHANTIX [Suspect]
     Indication: TOBACCO USER
     Dosage: DAILY DOSE:2MG-TEXT:DAILY
     Route: 048
     Dates: start: 20080616, end: 20080707
  2. IBUPROFEN TABLETS [Suspect]
     Indication: PAIN
     Dosage: TEXT:DAILY TDD:800MG
     Dates: start: 20080710, end: 20080712

REACTIONS (2)
  - ABDOMINAL PAIN [None]
  - NEPHRITIS INTERSTITIAL [None]
